FAERS Safety Report 17976498 (Version 1)
Quarter: 2020Q3

REPORT INFORMATION
  Report Type: Report from Study
  Country: US (occurrence: US)
  Receive Date: 20200703
  Receipt Date: 20200703
  Transmission Date: 20201103
  Serious: Yes (Death, Life-Threatening, Hospitalization, Other)
  Sender: FDA-Public Use
  Company Number: US-ROCHE-1961337

PATIENT
  Age: 66 Year
  Sex: Female
  Weight: 42.6 kg

DRUGS (3)
  1. TRASTUZUMAB EMTANSINE [Suspect]
     Active Substance: ADO-TRASTUZUMAB EMTANSINE
     Route: 042
     Dates: start: 20170315
  2. TRASTUZUMAB EMTANSINE [Suspect]
     Active Substance: ADO-TRASTUZUMAB EMTANSINE
     Indication: UTERINE CANCER
     Route: 042
     Dates: start: 20170222
  3. TRASTUZUMAB EMTANSINE [Suspect]
     Active Substance: ADO-TRASTUZUMAB EMTANSINE
     Dosage: 30?90 MINUTES ON DAY 1?DATE OF LAST DOSE ADMINISTERED: 15/MAR/2017  (TOTAL DOSE ADMINISTERED WAS 153
     Route: 042
     Dates: start: 20170130

REACTIONS (12)
  - Decreased appetite [Unknown]
  - Blood creatinine increased [Not Recovered/Not Resolved]
  - Fatigue [Unknown]
  - Pneumonia [Fatal]
  - Blood bilirubin increased [Not Recovered/Not Resolved]
  - Sepsis [Fatal]
  - Respiratory failure [Recovered/Resolved]
  - Hypoxia [Not Recovered/Not Resolved]
  - Hypoalbuminaemia [Not Recovered/Not Resolved]
  - Cough [Unknown]
  - Weight decreased [Unknown]
  - Hypotension [Not Recovered/Not Resolved]

NARRATIVE: CASE EVENT DATE: 20170328
